FAERS Safety Report 18649497 (Version 2)
Quarter: 2020Q4

REPORT INFORMATION
  Report Type: Spontaneous
  Country: US (occurrence: US)
  Receive Date: 20201222
  Receipt Date: 20201228
  Transmission Date: 20210114
  Serious: Yes (Hospitalization, Other)
  Sender: FDA-Public Use
  Company Number: US-PFIZER INC-2020496047

PATIENT
  Age: 61 Year
  Sex: Female

DRUGS (1)
  1. DOXYCYCLINE MONOHYDRATE [Suspect]
     Active Substance: DOXYCYCLINE
     Indication: PNEUMONIA
     Dosage: 100 MG

REACTIONS (2)
  - Hepatic failure [Unknown]
  - Chronic hepatitis B [Unknown]
